FAERS Safety Report 7247242-8 (Version None)
Quarter: 2011Q1

REPORT INFORMATION
  Report Type: 
  Country: None (occurrence: None)
  Receive Date: 20110127
  Receipt Date: 20101108
  Transmission Date: 20110831
  Serious: No
  Sender: FDA-Public Use
  Company Number: US-BAYER-2010-001025

PATIENT
  Sex: Female
  Weight: 59 kg

DRUGS (6)
  1. MULTIVITAMIN [Concomitant]
  2. ATENOLOL [Concomitant]
  3. ALEVE (CAPLET) [Suspect]
     Dosage: 220 MG, BID
     Route: 048
  4. ALPRAZOLAM [Concomitant]
  5. ALEVE (CAPLET) [Suspect]
     Indication: SPONDYLITIS
     Dosage: 220 MG, QD
     Route: 048
     Dates: start: 20101108
  6. DIOVAN [Concomitant]

REACTIONS (1)
  - SPONDYLITIS [None]
